FAERS Safety Report 7026728-5 (Version None)
Quarter: 2010Q4

REPORT INFORMATION
  Report Type: 
  Country: None (occurrence: None)
  Receive Date: 20101004
  Receipt Date: 20100927
  Transmission Date: 20110411
  Serious: Yes (Other)
  Sender: FDA-Public Use
  Company Number: US-GENZYME-CLOF-1001171

PATIENT
  Sex: Female
  Weight: 119.4 kg

DRUGS (1)
  1. CLOLAR [Suspect]
     Indication: NON-HODGKIN'S LYMPHOMA
     Dosage: 4 MG, QD
     Route: 048
     Dates: start: 20081124, end: 20081208

REACTIONS (2)
  - PANCYTOPENIA [None]
  - THROMBOCYTOPENIA [None]
